FAERS Safety Report 19173185 (Version 1)
Quarter: 2021Q2

REPORT INFORMATION
  Report Type: Spontaneous
  Country: US (occurrence: US)
  Receive Date: 20210422
  Receipt Date: 20210422
  Transmission Date: 20210717
  Serious: No
  Sender: FDA-Public Use
  Company Number: None

PATIENT
  Age: 46 Year
  Sex: Male
  Weight: 93.9 kg

DRUGS (6)
  1. CALCIUM [Concomitant]
     Active Substance: CALCIUM
  2. MAGNESIUM [Concomitant]
     Active Substance: MAGNESIUM
  3. BAMLANIVIMAB 700MG ETESEVIMAB 1400MG [Suspect]
     Active Substance: BAMLANIVIMAB\ETESEVIMAB
     Indication: COVID-19
     Dosage: ?          QUANTITY:110 ML MILLILITRE(S);?
     Route: 042
     Dates: start: 20210421, end: 20210421
  4. ZINC. [Concomitant]
     Active Substance: ZINC
  5. LISINOPRIL AND HYDROCHLOROTHIAZIDE [Concomitant]
     Active Substance: HYDROCHLOROTHIAZIDE\LISINOPRIL
  6. BALANCE OF NATURE MULTIVITAMIN [Concomitant]

REACTIONS (5)
  - Foreign body in throat [None]
  - Infusion related reaction [None]
  - Chest discomfort [None]
  - Cough [None]
  - Oropharyngeal discomfort [None]

NARRATIVE: CASE EVENT DATE: 20210421
